FAERS Safety Report 6345204-6 (Version None)
Quarter: 2009Q3

REPORT INFORMATION
  Report Type: 
  Country: None (occurrence: None)
  Receive Date: 20090821
  Receipt Date: 20090630
  Transmission Date: 20100115
  Serious: No
  Sender: FDA-Public Use
  Company Number: 8048390

PATIENT
  Age: 47 Year
  Sex: Female
  Weight: 35.38 kg

DRUGS (1)
  1. CIMZIA [Suspect]
     Dates: start: 20090203

REACTIONS (1)
  - CONJUNCTIVITIS INFECTIVE [None]
